FAERS Safety Report 8302222-6 (Version None)
Quarter: 2012Q2

REPORT INFORMATION
  Report Type: 
  Country: None (occurrence: None)
  Receive Date: 20120418
  Receipt Date: 20120418
  Transmission Date: 20120825
  Serious: Yes (Hospitalization)
  Sender: FDA-Public Use
  Company Number: None

PATIENT
  Sex: Female
  Weight: 73.12 kg

DRUGS (4)
  1. BEVACIZUMAB (RHUMAB VEGF) [Suspect]
     Dosage: 358 MG
  2. ELOXATIN [Suspect]
     Dosage: 152.15 MG
  3. FLUOROURACIL [Suspect]
     Dosage: 716 MG
  4. LEUCOVORIN CALCIUM [Suspect]
     Dosage: 716 MG

REACTIONS (1)
  - DYSPNOEA [None]
